FAERS Safety Report 6938499-9 (Version None)
Quarter: 2010Q3

REPORT INFORMATION
  Report Type: 
  Country: None (occurrence: None)
  Receive Date: 20100824
  Receipt Date: 20100818
  Transmission Date: 20110219
  Serious: Yes (Hospitalization)
  Sender: FDA-Public Use
  Company Number: US-ASTRAZENECA-2008UW08436

PATIENT
  Age: 18391 Day
  Sex: Female
  Weight: 77 kg

DRUGS (15)
  1. ATENOLOL [Suspect]
     Indication: HYPERTENSION
     Route: 048
     Dates: start: 20070808
  2. LISINOPRIL [Suspect]
     Indication: HYPERTENSION
     Route: 048
     Dates: start: 19970225
  3. BEVACIZUMAB [Suspect]
     Indication: COLON CANCER
     Route: 042
     Dates: start: 20070815
  4. OXALIPLATIN [Suspect]
     Indication: COLON CANCER
     Route: 042
     Dates: start: 20070815, end: 20070815
  5. OXALIPLATIN [Suspect]
     Route: 042
     Dates: start: 20070914
  6. LEUCOVORIN CALCIUM [Suspect]
     Indication: COLON CANCER
     Route: 042
     Dates: start: 20070815
  7. FLUOROURACIL [Suspect]
     Indication: COLON CANCER
     Route: 040
     Dates: start: 20070815, end: 20070817
  8. FLUOROURACIL [Suspect]
     Route: 040
     Dates: start: 20070914
  9. FLUOROURACIL [Suspect]
     Dosage: PUMP INJECTION
     Route: 042
     Dates: start: 20070815, end: 20070815
  10. FLUOROURACIL [Suspect]
     Route: 042
     Dates: start: 20070914
  11. CLONIDINE [Suspect]
     Route: 048
     Dates: start: 20070809
  12. HYDROCODONE BITARTRATE [Concomitant]
     Route: 048
     Dates: start: 20070501
  13. ASCORBIC ACID [Concomitant]
     Route: 048
  14. VITAMIN E [Concomitant]
     Route: 048
  15. MULTI-VITAMIN [Concomitant]
     Route: 048

REACTIONS (2)
  - FLUSHING [None]
  - HYPOTENSION [None]
